FAERS Safety Report 8606334-9 (Version None)
Quarter: 2012Q3

REPORT INFORMATION
  Report Type: 
  Country: None (occurrence: None)
  Receive Date: 20120820
  Receipt Date: 20120816
  Transmission Date: 20120928
  Serious: Yes (Death)
  Sender: FDA-Public Use
  Company Number: CR-ROCHE-1103200

PATIENT
  Sex: Male

DRUGS (2)
  1. RITUXIMAB [Suspect]
     Indication: CHRONIC LYMPHOCYTIC LEUKAEMIA
     Route: 042
     Dates: start: 20100510, end: 20120413
  2. LEUKERAN [Concomitant]

REACTIONS (2)
  - SEPTIC SHOCK [None]
  - INTESTINAL ISCHAEMIA [None]
